FAERS Safety Report 16934261 (Version 1)
Quarter: 2019Q4

REPORT INFORMATION
  Report Type: Spontaneous
  Country: US (occurrence: US)
  Receive Date: 20191017
  Receipt Date: 20191017
  Transmission Date: 20200122
  Serious: Yes (Disabling)
  Sender: FDA-Public Use
  Company Number: None

PATIENT
  Age: 27 Year
  Sex: Female
  Weight: 81 kg

DRUGS (4)
  1. VIT D [Concomitant]
     Active Substance: VITAMIN D NOS
  2. MULTI VITAMIN [Concomitant]
     Active Substance: VITAMINS
  3. CIPROFLOXACN [Suspect]
     Active Substance: CIPROFLOXACIN
     Indication: URINARY TRACT INFECTION
     Dosage: ?          QUANTITY:1 TABLET(S);?
     Route: 048
     Dates: start: 20190217, end: 20190218
  4. OMEGA 3S [Concomitant]

REACTIONS (6)
  - Asthenia [None]
  - Carpal tunnel syndrome [None]
  - Chest pain [None]
  - Fatigue [None]
  - Tendon pain [None]
  - Abdominal pain [None]

NARRATIVE: CASE EVENT DATE: 20191007
